FAERS Safety Report 18360126 (Version 1)
Quarter: 2020Q4

REPORT INFORMATION
  Report Type: Spontaneous
  Country: US (occurrence: US)
  Receive Date: 20201007
  Receipt Date: 20201007
  Transmission Date: 20210114
  Serious: Yes (Hospitalization)
  Sender: FDA-Public Use
  Company Number: None

PATIENT
  Age: 70 Year
  Sex: Male
  Weight: 73 kg

DRUGS (1)
  1. FARXIGA [Suspect]
     Active Substance: DAPAGLIFLOZIN PROPANEDIOL
     Indication: DIABETES MELLITUS

REACTIONS (7)
  - Glucose urine present [None]
  - Blood glucose increased [None]
  - Anion gap increased [None]
  - Blood pH decreased [None]
  - PCO2 abnormal [None]
  - Blood lactic acid increased [None]
  - Urine ketone body present [None]
